FAERS Safety Report 16804604 (Version 3)
Quarter: 2020Q1

REPORT INFORMATION
  Report Type: Spontaneous
  Country: US (occurrence: US)
  Receive Date: 20190913
  Receipt Date: 20200308
  Transmission Date: 20200409
  Serious: No
  Sender: FDA-Public Use
  Company Number: US-TEVA-2019-US-1106314

PATIENT
  Sex: Male

DRUGS (2)
  1. LIDOCAINE. [Suspect]
     Active Substance: LIDOCAINE
     Indication: MUSCULOSKELETAL PAIN
     Route: 062
     Dates: start: 201909
  2. LIDOCAINE. [Suspect]
     Active Substance: LIDOCAINE
     Indication: ROTATOR CUFF SYNDROME

REACTIONS (2)
  - Application site vesicles [Unknown]
  - Pain [Unknown]

NARRATIVE: CASE EVENT DATE: 201909
